FAERS Safety Report 8771217 (Version 1)
Quarter: 2012Q4

REPORT INFORMATION
  Report Type: 
  Country: DE (occurrence: DE)
  Receive Date: 20120906
  Receipt Date: 20120906
  Transmission Date: 20130627
  Serious: Yes (Other)
  Sender: FDA-Public Use
  Company Number: DE-BRISTOL-MYERS SQUIBB COMPANY-16848780

PATIENT
  Age: 58 Year
  Sex: Male

DRUGS (3)
  1. BARACLUDE [Suspect]
     Indication: HIV INFECTION
     Dosage: also received 0.5mg
     Route: 048
     Dates: start: 201106
  2. VIRAMUNE [Suspect]
     Indication: HIV INFECTION
     Route: 048
     Dates: start: 201106
  3. TRUVADA [Suspect]
     Indication: HIV INFECTION
     Dosage: Aslo received 100mg
     Dates: start: 201106

REACTIONS (1)
  - Testicular atrophy [Not Recovered/Not Resolved]
